FAERS Safety Report 20080673 (Version 1)
Quarter: 2021Q4

REPORT INFORMATION
  Report Type: Spontaneous
  Country: US (occurrence: None)
  Receive Date: 20211116
  Receipt Date: 20211116
  Transmission Date: 20220303
  Serious: No
  Sender: FDA-Public Use
  Company Number: None

PATIENT
  Sex: Female

DRUGS (1)
  1. LUPRON DEPOT [Suspect]
     Active Substance: LEUPROLIDE ACETATE
     Indication: Uterine leiomyoma
     Dosage: OTHER FREQUENCY : EVERY3MONTHS ;?
     Route: 030
     Dates: start: 202105

REACTIONS (4)
  - Hot flush [None]
  - Pain in extremity [None]
  - Oligomenorrhoea [None]
  - Haemorrhage [None]

NARRATIVE: CASE EVENT DATE: 20210501
